FAERS Safety Report 8609902-3 (Version None)
Quarter: 2012Q3

REPORT INFORMATION
  Report Type: 
  Country: None (occurrence: None)
  Receive Date: 20120821
  Receipt Date: 20120817
  Transmission Date: 20120928
  Serious: No
  Sender: FDA-Public Use
  Company Number: US-PFIZER INC-2012202707

PATIENT
  Age: 71 Year
  Sex: Female
  Weight: 52.154 kg

DRUGS (8)
  1. FISH OIL [Concomitant]
     Indication: SUPPLEMENTATION THERAPY
     Dosage: 1200 MG, 2X/DAY
  2. FIORICET [Concomitant]
     Indication: HEADACHE
     Dosage: TWO TABLETS OF UNKNOWN DOSE, DAILY
     Route: 048
  3. MULTI-VITAMINS [Concomitant]
     Indication: VITAMIN SUPPLEMENTATION
     Dosage: UNK
  4. LORAZEPAM [Concomitant]
     Indication: ANXIETY
     Dosage: 1 MG, 1X/DAY
  5. LORAZEPAM [Concomitant]
     Indication: SLEEP DISORDER
  6. VITAMIN D [Concomitant]
     Indication: VITAMIN SUPPLEMENTATION
     Dosage: 2000 IU, DAILY
  7. NEURONTIN [Suspect]
     Indication: MULTIPLE SCLEROSIS
  8. NEURONTIN [Suspect]
     Indication: NEURALGIA
     Dosage: 100 MG, 3X/DAY
     Dates: start: 20120721

REACTIONS (1)
  - RASH [None]
